FAERS Safety Report 8560922-7 (Version None)
Quarter: 2012Q3

REPORT INFORMATION
  Report Type: 
  Country: None (occurrence: None)
  Receive Date: 20120802
  Receipt Date: 20120725
  Transmission Date: 20120928
  Serious: Yes (Hospitalization)
  Sender: FDA-Public Use
  Company Number: DE-UCBSA-058661

PATIENT
  Age: 68 Year
  Sex: Male
  Weight: 94 kg

DRUGS (4)
  1. CIMZIA [Suspect]
     Indication: RHEUMATOID ARTHRITIS
     Dosage: UNKNOWN DOSE, BATCH NO: UNKNOWN
  2. PREDNISOLONE [Concomitant]
     Indication: RHEUMATOID ARTHRITIS
     Dosage: SINGLE DOSE:7.5
  3. CIMZIA [Suspect]
     Dosage: 400 MG
     Route: 058
     Dates: start: 20120501, end: 20120101
  4. METHOTREXATE [Concomitant]
     Indication: RHEUMATOID ARTHRITIS
     Dosage: SINGLE DOSE:15
     Route: 058

REACTIONS (3)
  - HERPES ZOSTER [None]
  - INFECTION [None]
  - RHEUMATOID ARTHRITIS [None]
